FAERS Safety Report 17584028 (Version 1)
Quarter: 2020Q1

REPORT INFORMATION
  Report Type: Spontaneous
  Country: TR (occurrence: TR)
  Receive Date: 20200326
  Receipt Date: 20200326
  Transmission Date: 20200409
  Serious: Yes (Death)
  Sender: FDA-Public Use
  Company Number: TR-ABBVIE-20K-161-3337378-00

PATIENT
  Age: 33 Year
  Sex: Female

DRUGS (2)
  1. IMURAN [Suspect]
     Active Substance: AZATHIOPRINE
     Indication: ANKYLOSING SPONDYLITIS
     Route: 065
  2. HUMIRA [Suspect]
     Active Substance: ADALIMUMAB
     Indication: ANKYLOSING SPONDYLITIS
     Route: 058

REACTIONS (7)
  - Upper-airway cough syndrome [Unknown]
  - Cough [Unknown]
  - Nasal obstruction [Unknown]
  - Asthenia [Unknown]
  - Exposure to communicable disease [Unknown]
  - Headache [Unknown]
  - Death [Fatal]
